FAERS Safety Report 7937719-1 (Version None)
Quarter: 2011Q4

REPORT INFORMATION
  Report Type: 
  Country: None (occurrence: None)
  Receive Date: 20111123
  Receipt Date: 20111117
  Transmission Date: 20120403
  Serious: Yes (Other)
  Sender: FDA-Public Use
  Company Number: PHHY2011JP95807

PATIENT
  Age: 89 Year
  Sex: Female

DRUGS (1)
  1. VOLTAREN [Suspect]
     Indication: ANALGESIC THERAPY
     Dosage: 50
     Route: 054
     Dates: start: 20111015, end: 20111025

REACTIONS (3)
  - MUSCULAR WEAKNESS [None]
  - SPINAL COLUMN STENOSIS [None]
  - HYPOAESTHESIA [None]
